FAERS Safety Report 9391002 (Version 4)
Quarter: 2021Q1

REPORT INFORMATION
  Report Type: Report from Study
  Country: DE (occurrence: DE)
  Receive Date: 20130709
  Receipt Date: 20210112
  Transmission Date: 20210420
  Serious: Yes (Other)
  Sender: FDA-Public Use
  Company Number: DE-SHIRE-SPV1-2009-01646

PATIENT

DRUGS (6)
  1. IDURSULFASE [Suspect]
     Active Substance: IDURSULFASE
     Indication: MUCOPOLYSACCHARIDOSIS II
     Dosage: 12 MG, 1X/WEEK
     Route: 041
     Dates: start: 20090217
  2. PREDNISOLONE. [Concomitant]
     Active Substance: PREDNISOLONE
     Indication: PREMEDICATION
     Dosage: 50 MG, AS REQ^D
     Route: 042
     Dates: start: 20090308
  3. FENISTIL [Concomitant]
     Active Substance: DIMETHINDENE
     Indication: ANAPHYLACTOID REACTION
     Dosage: 2 ML, ONE DOSE
     Route: 065
     Dates: start: 20090323
  4. CLEMASTINE [Concomitant]
     Active Substance: CLEMASTINE
     Indication: PREMEDICATION
  5. IDURSULFASE [Suspect]
     Active Substance: IDURSULFASE
     Dosage: 0.56 MG/KG, 1X/WEEK
     Route: 041
     Dates: start: 20090217
  6. RAMIPRIL. [Concomitant]
     Active Substance: RAMIPRIL
     Indication: PREMEDICATION

REACTIONS (3)
  - Infusion related reaction [Recovered/Resolved]
  - Drug hypersensitivity [Recovered/Resolved]
  - Anaphylactoid reaction [Recovered/Resolved]

NARRATIVE: CASE EVENT DATE: 20090323
